FAERS Safety Report 12476082 (Version 1)
Quarter: 2016Q2

REPORT INFORMATION
  Report Type: Spontaneous
  Country: US (occurrence: US)
  Receive Date: 20160617
  Receipt Date: 20160617
  Transmission Date: 20160815
  Serious: No
  Sender: FDA-Public Use
  Company Number: US-ELI_LILLY_AND_COMPANY-US201604010072

PATIENT
  Sex: Female

DRUGS (1)
  1. ADCIRCA [Suspect]
     Active Substance: TADALAFIL
     Indication: PRODUCT USED FOR UNKNOWN INDICATION
     Dosage: UNK, QD
     Route: 048
     Dates: start: 201604, end: 201604

REACTIONS (5)
  - Muscle spasms [Recovered/Resolved]
  - Headache [Unknown]
  - Vision blurred [Recovered/Resolved]
  - Pain [Recovered/Resolved]
  - Restless legs syndrome [Recovered/Resolved]
